FAERS Safety Report 4622774-7 (Version None)
Quarter: 2005Q1

REPORT INFORMATION
  Report Type: 
  Country: None (occurrence: None)
  Receive Date: 20050329
  Receipt Date: 20050329
  Transmission Date: 20050727
  Serious: Yes (Hospitalization)
  Sender: FDA-Public Use
  Company Number: None

PATIENT
  Age: 43 Year
  Sex: Male
  Weight: 92.9874 kg

DRUGS (15)
  1. BCNU [Suspect]
     Indication: GLIOBLASTOMA MULTIFORME
     Dosage: 80MG/M2 IV D1, 2, 3, 56, 57, 58 THEN Q 8 WKS
     Route: 042
     Dates: start: 20040809
  2. BCNU [Suspect]
     Indication: GLIOBLASTOMA MULTIFORME
     Dosage: 80MG/M2 IV D1, 2, 3, 56, 57, 58 THEN Q 8 WKS
     Route: 042
     Dates: start: 20040810
  3. BCNU [Suspect]
     Indication: GLIOBLASTOMA MULTIFORME
     Dosage: 80MG/M2 IV D1, 2, 3, 56, 57, 58 THEN Q 8 WKS
     Route: 042
     Dates: start: 20040811
  4. BCNU [Suspect]
     Indication: GLIOBLASTOMA MULTIFORME
     Dosage: 80MG/M2 IV D1, 2, 3, 56, 57, 58 THEN Q 8 WKS
     Route: 042
     Dates: start: 20041004
  5. BCNU [Suspect]
     Indication: GLIOBLASTOMA MULTIFORME
     Dosage: 80MG/M2 IV D1, 2, 3, 56, 57, 58 THEN Q 8 WKS
     Route: 042
     Dates: start: 20041005
  6. BCNU [Suspect]
     Indication: GLIOBLASTOMA MULTIFORME
     Dosage: 80MG/M2 IV D1, 2, 3, 56, 57, 58 THEN Q 8 WKS
     Route: 042
     Dates: start: 20041006
  7. BCNU [Suspect]
     Indication: GLIOBLASTOMA MULTIFORME
     Dosage: 80MG/M2 IV D1, 2, 3, 56, 57, 58 THEN Q 8 WKS
     Route: 042
     Dates: start: 20041130
  8. BCNU [Suspect]
     Indication: GLIOBLASTOMA MULTIFORME
     Dosage: 80MG/M2 IV D1, 2, 3, 56, 57, 58 THEN Q 8 WKS
     Route: 042
     Dates: start: 20041202
  9. KEPPRA [Concomitant]
  10. PEPCID [Concomitant]
  11. LEXAPRO [Concomitant]
  12. ATENOLOL [Concomitant]
  13. PHENOBARB [Concomitant]
  14. TOPAMAX [Concomitant]
  15. DECADRON [Concomitant]

REACTIONS (6)
  - AGITATION [None]
  - APHASIA [None]
  - CONFUSIONAL STATE [None]
  - CONVULSION [None]
  - HEMIPARESIS [None]
  - OEDEMA [None]
